FAERS Safety Report 23097927 (Version 1)
Quarter: 2023Q4

REPORT INFORMATION
  Report Type: Spontaneous
  Country: US (occurrence: US)
  Receive Date: 20231023
  Receipt Date: 20231023
  Transmission Date: 20240110
  Serious: Yes (Hospitalization, Other)
  Sender: FDA-Public Use
  Company Number: US-ALEMBIC PHARMACUETICALS LIMITED-2023SCAL000946

PATIENT

DRUGS (2)
  1. METOPROLOL TARTRATE [Suspect]
     Active Substance: METOPROLOL TARTRATE
     Indication: Hypertension
     Dosage: UNK
     Route: 065
  2. AMLODIPINE [Suspect]
     Active Substance: AMLODIPINE BESYLATE
     Indication: Hypertension
     Dosage: UNK
     Route: 065

REACTIONS (13)
  - BRASH syndrome [Recovering/Resolving]
  - Bradycardia [Recovered/Resolved]
  - Hypothermia [Unknown]
  - Atrial fibrillation [Unknown]
  - Septic shock [Unknown]
  - Azotaemia [Unknown]
  - Hyperkalaemia [Unknown]
  - Asthenia [Unknown]
  - Hypotension [Unknown]
  - Lethargy [Unknown]
  - Blood creatine increased [Unknown]
  - Blood urea increased [Unknown]
  - Blood thyroid stimulating hormone increased [Unknown]
